FAERS Safety Report 15246834 (Version 1)
Quarter: 2018Q3

REPORT INFORMATION
  Report Type: Report from Study
  Country: GB (occurrence: GB)
  Receive Date: 20180806
  Receipt Date: 20180806
  Transmission Date: 20181010
  Serious: Yes (Hospitalization)
  Sender: FDA-Public Use
  Company Number: PHHY2018GB062551

PATIENT
  Age: 41 Year
  Sex: Female
  Weight: 62 kg

DRUGS (1)
  1. SANDOSTATIN LAR DEPOT [Suspect]
     Active Substance: OCTREOTIDE ACETATE
     Indication: NEUROENDOCRINE TUMOUR
     Dosage: 30 MG, QMO
     Route: 030
     Dates: start: 20170801

REACTIONS (7)
  - Hypertension [Unknown]
  - Injection site mass [Unknown]
  - Malaise [Unknown]
  - Agitation [Unknown]
  - Skin discolouration [Unknown]
  - Heart rate increased [Unknown]
  - Aggression [Unknown]

NARRATIVE: CASE EVENT DATE: 201807
